FAERS Safety Report 19091072 (Version 3)
Quarter: 2021Q2

REPORT INFORMATION
  Report Type: Report from Study
  Country: JP (occurrence: JP)
  Receive Date: 20210405
  Receipt Date: 20210503
  Transmission Date: 20210717
  Serious: Yes (Other)
  Sender: FDA-Public Use
  Company Number: JP-ADVANZ PHARMA-202103002387

PATIENT

DRUGS (14)
  1. HYDROXYCHLOROQUINE SULFATE (AUTHORIZED GENERIC),PLAQUENIL [Suspect]
     Active Substance: HYDROXYCHLOROQUINE SULFATE
     Dosage: 400 MG, QD,  FILM?COATED TABLET
     Route: 048
     Dates: start: 20180118, end: 20190513
  2. HYDROXYCHLOROQUINE SULFATE (AUTHORIZED GENERIC),PLAQUENIL [Suspect]
     Active Substance: HYDROXYCHLOROQUINE SULFATE
     Dosage: 200 MG, QD, FILM?COATED TABLET
     Route: 048
     Dates: start: 20190514
  3. NEXIUM [Concomitant]
     Active Substance: ESOMEPRAZOLE MAGNESIUM
     Indication: INVESTIGATION
  4. TALION [Concomitant]
     Indication: INVESTIGATION
  5. ONEALFA [Concomitant]
     Active Substance: ALFACALCIDOL
     Indication: PROPHYLAXIS
     Dosage: UNK
  6. GOSHAJINKIGAN [Concomitant]
     Active Substance: HERBALS
     Indication: PROPHYLAXIS
     Dosage: UNK
  7. TALION [Concomitant]
     Indication: PROPHYLAXIS
     Dosage: UNK
  8. GOSHAJINKIGAN [Concomitant]
     Active Substance: HERBALS
     Indication: INVESTIGATION
  9. JUZENTAIHOTO [Concomitant]
     Active Substance: HERBALS
     Indication: INVESTIGATION
  10. NEXIUM [Concomitant]
     Active Substance: ESOMEPRAZOLE MAGNESIUM
     Indication: PROPHYLAXIS
     Dosage: UNK
  11. JUZENTAIHOTO [Concomitant]
     Active Substance: HERBALS
     Indication: PROPHYLAXIS
     Dosage: UNK
  12. ONEALFA [Concomitant]
     Active Substance: ALFACALCIDOL
     Indication: INVESTIGATION
  13. HYDROXYCHLOROQUINE SULFATE (AUTHORIZED GENERIC),PLAQUENIL [Suspect]
     Active Substance: HYDROXYCHLOROQUINE SULFATE
     Indication: SYSTEMIC LUPUS ERYTHEMATOSUS
     Dosage: 200 MG, QD,  FILM?COATED TABLET
     Route: 048
     Dates: start: 20170202, end: 20170418
  14. PREDONINE [Concomitant]
     Active Substance: PREDNISOLONE
     Indication: SYSTEMIC LUPUS ERYTHEMATOSUS
     Dosage: UNK

REACTIONS (1)
  - Optic nerve cupping [Unknown]

NARRATIVE: CASE EVENT DATE: 20210120
